FAERS Safety Report 7238698-5 (Version None)
Quarter: 2011Q1

REPORT INFORMATION
  Report Type: 
  Country: None (occurrence: None)
  Receive Date: 20110121
  Receipt Date: 20110110
  Transmission Date: 20110831
  Serious: Yes (Death, Hospitalization, Other)
  Sender: FDA-Public Use
  Company Number: US-CELGENEUS-163-20785-10081588

PATIENT
  Sex: Female

DRUGS (22)
  1. OXYCONTIN [Concomitant]
     Route: 065
  2. XANAX [Concomitant]
     Route: 065
  3. ZOCOR [Concomitant]
     Route: 065
  4. CYTOXAN [Concomitant]
     Indication: BREAST CANCER
  5. PRILOSEC [Concomitant]
     Route: 065
  6. HUMULIN 70/30 [Concomitant]
     Dosage: 20UNITS, AT BREAKFAST, 22UNITS AT DINNER
     Route: 065
  7. INSULIN [Concomitant]
     Dosage: SLIDING SCALE
     Route: 065
  8. THALOMID [Suspect]
     Indication: MULTIPLE MYELOMA
     Route: 048
     Dates: start: 20100601, end: 20100701
  9. NORVASC [Concomitant]
     Route: 065
  10. REMERON [Concomitant]
     Route: 065
  11. ZOFRAN [Concomitant]
     Route: 065
  12. CYMBALTA [Concomitant]
     Route: 065
  13. GLUCOPHAGE [Concomitant]
     Route: 065
  14. METFORMIN [Concomitant]
     Route: 065
  15. CYTOXAN [Concomitant]
     Indication: MULTIPLE MYELOMA
     Route: 065
     Dates: start: 20100701
  16. ADRIAMYCIN PFS [Concomitant]
     Indication: MULTIPLE MYELOMA
     Route: 065
     Dates: start: 20100701
  17. LISINOPRIL [Concomitant]
     Dosage: 20/12.5MG
     Route: 065
  18. ADRIAMYCIN PFS [Concomitant]
     Indication: BREAST CANCER
  19. HYDROMORPHONE [Concomitant]
     Dosage: 1-2
     Route: 048
  20. HALPRIN [Concomitant]
     Route: 065
  21. MIRALAX [Concomitant]
     Route: 065
  22. ZOVIRAX [Concomitant]
     Route: 065

REACTIONS (7)
  - WOUND INFECTION [None]
  - MULTI-ORGAN FAILURE [None]
  - JOINT SWELLING [None]
  - HYPOXIA [None]
  - NEUTROPENIA [None]
  - FATIGUE [None]
  - ASTHENIA [None]
